FAERS Safety Report 4972617-7 (Version None)
Quarter: 2006Q1

REPORT INFORMATION
  Report Type: 
  Country: None (occurrence: None)
  Receive Date: 20060216
  Receipt Date: 20051104
  Transmission Date: 20060701
  Serious: No
  Sender: FDA-Public Use
  Company Number: TPA2005A01422

PATIENT
  Age: 58 Year
  Sex: Male
  Weight: 95.2554 kg

DRUGS (3)
  1. ROZEREM [Suspect]
     Indication: INSOMNIA
     Dosage: 8 MG, QHS, PER ORAL
     Route: 048
     Dates: start: 20051103
  2. UNKNOWN HEART PILLS (CARDIAC THERAPY) [Concomitant]
  3. UNKNOWN SLEEP PILLS (HYPNOTICS AND SEDATIVES) [Concomitant]

REACTIONS (1)
  - DRUG INEFFECTIVE [None]
